FAERS Safety Report 6783386-2 (Version None)
Quarter: 2010Q2

REPORT INFORMATION
  Report Type: 
  Country: None (occurrence: None)
  Receive Date: 20100622
  Receipt Date: 20100608
  Transmission Date: 20101027
  Serious: Yes (Hospitalization, Other)
  Sender: FDA-Public Use
  Company Number: PHHY2010US21325

PATIENT
  Sex: Female
  Weight: 75 kg

DRUGS (3)
  1. EXJADE [Suspect]
     Indication: SERUM FERRITIN INCREASED
     Dosage: 1500 MG, QD
     Route: 048
     Dates: start: 20091228, end: 20100405
  2. EXJADE [Suspect]
     Dosage: 1500 MG, DAILY
     Route: 048
     Dates: start: 20091201
  3. RED BLOOD CELLS [Concomitant]
     Dosage: UNK

REACTIONS (10)
  - ABDOMINAL PAIN [None]
  - APPENDICECTOMY [None]
  - AZOTAEMIA [None]
  - BLOOD CREATININE INCREASED [None]
  - DIVERTICULUM [None]
  - FATIGUE [None]
  - LIVER DISORDER [None]
  - LIVER FUNCTION TEST ABNORMAL [None]
  - MUSCULOSKELETAL PAIN [None]
  - UMBILICAL HERNIA REPAIR [None]
